FAERS Safety Report 15424473 (Version 7)
Quarter: 2020Q3

REPORT INFORMATION
  Report Type: Report from Study
  Country: US (occurrence: US)
  Receive Date: 20180925
  Receipt Date: 20190117
  Transmission Date: 20201105
  Serious: No
  Sender: FDA-Public Use
  Company Number: US-JNJFOC-20180926108

PATIENT
  Age: 64 Year
  Sex: Female

DRUGS (6)
  1. LIALDA [Concomitant]
     Active Substance: MESALAMINE
     Route: 048
  2. USTEKINUMAB [Suspect]
     Active Substance: USTEKINUMAB
     Indication: CROHN^S DISEASE
     Route: 058
     Dates: start: 20140722
  3. USTEKINUMAB [Suspect]
     Active Substance: USTEKINUMAB
     Route: 058
  4. VITAMIN D3 [Concomitant]
     Active Substance: CHOLECALCIFEROL
     Route: 048
  5. FISH OIL [Concomitant]
     Active Substance: FISH OIL
     Indication: NUTRITIONAL SUPPLEMENTATION
     Route: 065
  6. CITRACAL PLUS D [Concomitant]
     Indication: NUTRITIONAL SUPPLEMENTATION
     Route: 048
     Dates: start: 20000101

REACTIONS (1)
  - Intraocular melanoma [Not Recovered/Not Resolved]

NARRATIVE: CASE EVENT DATE: 20180529
